FAERS Safety Report 21394285 (Version 1)
Quarter: 2022Q3

REPORT INFORMATION
  Report Type: Spontaneous
  Country: DE (occurrence: DE)
  Receive Date: 20220930
  Receipt Date: 20220930
  Transmission Date: 20221027
  Serious: Yes (Hospitalization)
  Sender: FDA-Public Use
  Company Number: DE-ADRED-07030-01

PATIENT
  Age: 72 Year
  Sex: Male
  Weight: 70 kg

DRUGS (16)
  1. PREGABALIN [Interacting]
     Active Substance: PREGABALIN
     Indication: Product used for unknown indication
     Dosage: 2 DOSAGE FORMS DAILY; 25 MG, 1-0-1-0, UNIT DOSE : 1 DF , FREQUENCY : BD
  2. RAMIPRIL [Suspect]
     Active Substance: RAMIPRIL
     Indication: Product used for unknown indication
     Dosage: 5 MG, PAUSED, MEDICATION ERRORS
  3. XIPAMIDE [Suspect]
     Active Substance: XIPAMIDE
     Indication: Product used for unknown indication
     Dosage: 1 DOSAGE FORMS DAILY; 10 MG, 1-0-0-0, UNIT DOSE : 1 DF , FREQUENCY : OD, MEDICATION ERRORS
  4. METFORMIN [Interacting]
     Active Substance: METFORMIN HYDROCHLORIDE
     Indication: Product used for unknown indication
     Dosage: 2 DOSAGE FORMS DAILY; 500 MG, 1-0-1-0, UNIT DOSE : 1 DF , FREQUENCY : BD, MEDICATION ERRORS
  5. Kalinor [Concomitant]
     Indication: Product used for unknown indication
     Dosage: 2 DOSAGE FORMS DAILY; 1-1-0-0, UNIT DOSE : 1 DF , FREQUENCY : BD
  6. ALBUTEROL [Concomitant]
     Active Substance: ALBUTEROL
     Indication: Product used for unknown indication
     Dosage: DEMAND, METERED DOSE INHALER
  7. METOCLOPRAMIDE [Concomitant]
     Active Substance: METOCLOPRAMIDE
     Indication: Product used for unknown indication
     Dosage: 3 DOSAGE FORMS DAILY; 10 MG, 1-1-1-0, UNIT DOSE : 1 DF , FREQUENCY : 3 TIMES A DAY
  8. Laxans-ratiopharm [Concomitant]
     Indication: Product used for unknown indication
     Dosage: 40 DOSAGE FORMS DAILY; 20-20-0-0, DROPS,  LAXANS-RATIOPHARM 7.5MG/ML PICO, UNIT DOSE : 20 DF , FREQU
  9. ATORVASTATIN [Concomitant]
     Active Substance: ATORVASTATIN
     Indication: Product used for unknown indication
     Dosage: 1 DOSAGE FORMS DAILY; 10 MG, 0-0-1-0, UNIT DOSE : 1 DF , FREQUENCY : OD
  10. MOVICOL [Concomitant]
     Active Substance: POLYETHYLENE GLYCOL 3350\POTASSIUM CHLORIDE\SODIUM BICARBONATE\SODIUM CHLORIDE
     Indication: Product used for unknown indication
     Dosage: 1 DOSAGE FORMS DAILY; 1-0-0-0, POWDER , MOVICOL POUCH, UNIT DOSE : 1 DF , FREQUENCY : OD
  11. ASPIRIN [Concomitant]
     Active Substance: ASPIRIN
     Indication: Product used for unknown indication
     Dosage: 1 DOSAGE FORMS DAILY; 100 MG, 0-1-0-0, UNIT DOSE : 1 DF , FREQUENCY : OD
  12. GLYCOPYRRONIUM\INDACATEROL [Concomitant]
     Active Substance: GLYCOPYRRONIUM\INDACATEROL
     Indication: Product used for unknown indication
     Dosage: 1 DOSAGE FORMS DAILY; 1-0-0-0, ULTIBRO BREEZHALER 85 MICROGRAMS/45 MICROGRAMS, UNIT DOSE : 1 DF , FR
  13. TAMSULOSIN [Concomitant]
     Active Substance: TAMSULOSIN
     Indication: Product used for unknown indication
     Dosage: 1 DOSAGE FORMS DAILY; 0.4 MG, 0-0-1-0, UNIT DOSE : 1 DF , FREQUENCY : OD
  14. NALOXONE HYDROCHLORIDE\TILIDINE HYDROCHLORIDE [Concomitant]
     Active Substance: NALOXONE HYDROCHLORIDE\TILIDINE HYDROCHLORIDE
     Indication: Product used for unknown indication
     Dosage: 3 DOSAGE FORMS DAILY; 4|50 MG, 1-1-1-0, UNIT DOSE : 1 DF , FREQUENCY : 3 TIMES A DAY
  15. METAMIZOLE [Concomitant]
     Active Substance: METAMIZOLE
     Indication: Product used for unknown indication
     Dosage: 160 DOSAGE FORMS DAILY; 40-40-40-40, DROPS, UNIT DOSE : 40 DF , FREQUENCY : 4 TIMES A DAY
  16. PANTOPRAZOLE [Concomitant]
     Active Substance: PANTOPRAZOLE
     Indication: Product used for unknown indication
     Dosage: 2 DOSAGE FORMS DAILY; 40 MG, 1-0-1-0, UNIT DOSE : 1 DF , FREQUENCY : BD

REACTIONS (9)
  - Dehydration [Unknown]
  - Vomiting [Unknown]
  - General physical health deterioration [Unknown]
  - Product monitoring error [Unknown]
  - Acute kidney injury [Unknown]
  - Abdominal pain [Unknown]
  - Labelled drug-drug interaction medication error [Unknown]
  - Nausea [Unknown]
  - Pain [Unknown]
